FAERS Safety Report 16623499 (Version 2)
Quarter: 2019Q3

REPORT INFORMATION
  Report Type: Spontaneous
  Country: DE (occurrence: DE)
  Receive Date: 20190724
  Receipt Date: 20190802
  Transmission Date: 20191004
  Serious: Yes (Hospitalization)
  Sender: FDA-Public Use
  Company Number: DE-TEVA-2019-DE-1080263

PATIENT
  Age: 66 Year
  Sex: Male
  Weight: 83 kg

DRUGS (9)
  1. ONDANSETRON [Concomitant]
     Active Substance: ONDANSETRON
     Dosage: 8 MG, 1-0-1-0, TABLETS
     Route: 048
  2. OXALIPLATIN. [Suspect]
     Active Substance: OXALIPLATIN
     Dosage: NK MG/M2, BY SCHEME, LAST ON 21.02.18, SOLUTION FOR INJECTION/INFUSION
     Route: 042
  3. AVELUMAB [Suspect]
     Active Substance: AVELUMAB
     Dosage: NK MG/M2, BY SCHEME, LAST ON 21.02.18, SOLUTION FOR INJECTION/INFUSION
     Route: 042
  4. NATRIUMFOLINAT [Suspect]
     Active Substance: FOLATE SODIUM
     Dosage: NK MG/M2, BY SCHEME, LAST ON 21.02.18, SOLUTION FOR INJECTION/INFUSION
     Route: 042
  5. CETUXIMAB. [Suspect]
     Active Substance: CETUXIMAB
     Dosage: NK MG/M2, BY SCHEME, LAST ON 28.02.18, SOLUTION FOR INJECTION/INFUSION
     Route: 042
  6. LOPERAMID [Concomitant]
     Active Substance: LOPERAMIDE
     Dosage: 2 MG, IF NECESSARY, TABLETS
     Route: 048
  7. DEXAMETHASON [Concomitant]
     Active Substance: DEXAMETHASONE
     Dosage: 8 MG, 1-0-0-0, TABLETS
     Route: 048
  8. FLUOROURACIL. [Suspect]
     Active Substance: FLUOROURACIL
     Dosage: NK MG/M2, BY SCHEME, LAST ON 21.02.18, SOLUTION FOR INJECTION/INFUSION
     Route: 042
  9. DOXYCYCLIN [Concomitant]
     Active Substance: DOXYCYCLINE
     Dosage: 100 MG, 1-0-1-0, TABLETS
     Route: 048

REACTIONS (7)
  - Chills [Unknown]
  - Pain [Unknown]
  - Dyspnoea [Unknown]
  - Dizziness [Unknown]
  - General physical health deterioration [Unknown]
  - Cough [Unknown]
  - Pyrexia [Unknown]
